FAERS Safety Report 5534783-4 (Version None)
Quarter: 2007Q4

REPORT INFORMATION
  Report Type: 
  Country: None (occurrence: None)
  Receive Date: 20071205
  Receipt Date: 20071203
  Transmission Date: 20080405
  Serious: Yes (Life-Threatening)
  Sender: FDA-Public Use
  Company Number: CA-WYE-G00712607

PATIENT
  Sex: Female

DRUGS (1)
  1. TEMSIROLIMUS [Suspect]
     Dosage: UNKNOWN

REACTIONS (1)
  - TYPE III IMMUNE COMPLEX MEDIATED REACTION [None]
